FAERS Safety Report 9248506 (Version 1)
Quarter: 2013Q1

REPORT INFORMATION
  Report Type: Spontaneous
  Country: US (occurrence: None)
  Receive Date: 20121113
  Receipt Date: 20121113
  Transmission Date: 20140127
  Serious: Yes (Hospitalization, Other)
  Sender: FDA-Public Use
  Company Number: PHEH2012US011187

PATIENT
  Age: 15 Year
  Sex: Male
  Weight: 74.7 kg

DRUGS (3)
  1. TRILEPTAL [Suspect]
     Dosage: UNKNOWN
  2. OXCARBAZEPINE [Suspect]
     Indication: CONVULSION
     Route: 048
     Dates: start: 20120517, end: 20120531
  3. CLARINEX (DESLORATADINE) [Concomitant]

REACTIONS (3)
  - Thrombocytopenia [None]
  - Rash [None]
  - Petechiae [None]
